FAERS Safety Report 22242155 (Version 1)
Quarter: 2023Q2

REPORT INFORMATION
  Report Type: Report from Study
  Country: IT (occurrence: IT)
  Receive Date: 20230422
  Receipt Date: 20230422
  Transmission Date: 20230721
  Serious: Yes (Other)
  Sender: FDA-Public Use
  Company Number: None

PATIENT
  Age: 53 Year
  Sex: Female
  Weight: 54 kg

DRUGS (4)
  1. OXALIPLATIN [Suspect]
     Active Substance: OXALIPLATIN
     Indication: Signet-ring cell carcinoma
     Dosage: DURING CYCLE NO. 1 OF THERAPY THE PATIENT WAS ADMINISTERED 209.3 MG
     Dates: start: 20221212, end: 20221212
  2. CAPECITABINE [Suspect]
     Active Substance: CAPECITABINE
     Indication: Signet-ring cell carcinoma
     Dosage: DURING CYCLE NO. 1 OF THERAPY THE PATIENT TOOK 3000 MG OF CAPECITABINE PER DAY FOR
     Dates: start: 20221213, end: 20221226
  3. LANSOPRAZOLE [Concomitant]
     Active Substance: LANSOPRAZOLE
     Dosage: THE PATIENT TAKES 30 MG OF LANSOPRAZOLE, 1 TIME A DAY.
  4. PANCRELIPASE [Concomitant]
     Active Substance: PANCRELIPASE

REACTIONS (9)
  - Vomiting [Recovering/Resolving]
  - Feeding disorder [Recovering/Resolving]
  - Hypercreatininaemia [Unknown]
  - Weight decreased [Recovering/Resolving]
  - Decreased appetite [Recovering/Resolving]
  - Nausea [Recovering/Resolving]
  - Underweight [Recovering/Resolving]
  - Haematemesis [Recovered/Resolved]
  - Erosive oesophagitis [Unknown]

NARRATIVE: CASE EVENT DATE: 20221212
